FAERS Safety Report 6147214-0 (Version None)
Quarter: 2009Q2

REPORT INFORMATION
  Report Type: 
  Country: None (occurrence: None)
  Receive Date: 20090403
  Receipt Date: 20090326
  Transmission Date: 20091009
  Serious: Yes (Hospitalization)
  Sender: FDA-Public Use
  Company Number: 2009SP000820

PATIENT
  Age: 83 Year
  Sex: Female
  Weight: 52.6 kg

DRUGS (4)
  1. BROVANA [Suspect]
     Indication: CHRONIC OBSTRUCTIVE PULMONARY DISEASE
     Dosage: 15 UG/2ML; BID; INHALATION
     Route: 055
     Dates: start: 20070101
  2. PULMICORT-100 [Suspect]
  3. SPIRIVA [Concomitant]
  4. BUDESONIDE [Concomitant]

REACTIONS (6)
  - DEHYDRATION [None]
  - DIZZINESS [None]
  - GASTROENTERITIS [None]
  - LUNG INFECTION [None]
  - TREMOR [None]
  - WEIGHT DECREASED [None]
